FAERS Safety Report 24133536 (Version 1)
Quarter: 2024Q3

REPORT INFORMATION
  Report Type: Spontaneous
  Country: US (occurrence: None)
  Receive Date: 20240724
  Receipt Date: 20240724
  Transmission Date: 20241017
  Serious: Yes (Life-Threatening, Hospitalization)
  Sender: Public
  Company Number: None

PATIENT
  Age: 61 Year
  Sex: Male
  Weight: 85.5 kg

DRUGS (3)
  1. VENLAFAXINE [Suspect]
     Active Substance: VENLAFAXINE HYDROCHLORIDE
     Indication: Hot flush
     Dosage: OTHER QUANTITY : 30 TABLET(S);?FREQUENCY : DAILY;?
     Route: 048
     Dates: start: 20240521, end: 20240521
  2. TAMSULOSIN [Concomitant]
  3. Multivitamin [Concomitant]

REACTIONS (9)
  - Palpitations [None]
  - Hyperhidrosis [None]
  - Tremor [None]
  - Tremor [None]
  - Dyspnoea [None]
  - Dizziness [None]
  - Respiratory rate increased [None]
  - Screaming [None]
  - Myocardial infarction [None]

NARRATIVE: CASE EVENT DATE: 20240521
